FAERS Safety Report 10684841 (Version 1)
Quarter: 2014Q4

REPORT INFORMATION
  Report Type: Spontaneous
  Country: PT (occurrence: None)
  Receive Date: 20141229
  Receipt Date: 20141229
  Transmission Date: 20150529
  Serious: Yes (Disabling)
  Sender: FDA-Public Use
  Company Number: 2673027

PATIENT
  Age: 16 Year
  Sex: Female

DRUGS (2)
  1. MIDAZOLAM [Concomitant]
     Active Substance: MIDAZOLAM\MIDAZOLAM HYDROCHLORIDE
  2. ROPIVACAINE HYDROCHLORIDE. [Suspect]
     Active Substance: ROPIVACAINE HYDROCHLORIDE
     Indication: NERVE BLOCK

REACTIONS (1)
  - Peroneal nerve palsy [None]
